FAERS Safety Report 6226477-7 (Version None)
Quarter: 2009Q2

REPORT INFORMATION
  Report Type: 
  Country: None (occurrence: None)
  Receive Date: 20090612
  Receipt Date: 20090511
  Transmission Date: 20091009
  Serious: No
  Sender: FDA-Public Use
  Company Number: US-ABBOTT-09P-163-0573096-00

PATIENT
  Sex: Male
  Weight: 90.8 kg

DRUGS (4)
  1. HUMIRA [Suspect]
     Indication: PSORIASIS
     Dosage: LOADING DOSE 80MG, SECOND DOSE WAS 40MG
     Route: 058
     Dates: start: 20090416, end: 20090416
  2. HUMIRA [Suspect]
     Route: 058
  3. PROTONIX [Concomitant]
     Indication: DYSPEPSIA
  4. CLARITIN [Concomitant]
     Indication: HYPERSENSITIVITY

REACTIONS (1)
  - DRUG DOSE OMISSION [None]
